FAERS Safety Report 18755803 (Version 1)
Quarter: 2021Q1

REPORT INFORMATION
  Report Type: Spontaneous
  Country: US (occurrence: US)
  Receive Date: 20210119
  Receipt Date: 20210119
  Transmission Date: 20210419
  Serious: Yes (Life-Threatening, Hospitalization)
  Sender: FDA-Public Use
  Company Number: US-MYLANLABS-2021M1001715

PATIENT
  Age: 32 Year
  Sex: Male

DRUGS (1)
  1. BUPROPION. [Suspect]
     Active Substance: BUPROPION
     Indication: PRODUCT USED FOR UNKNOWN INDICATION
     Dosage: 180 DOSAGE FORM...
     Route: 048

REACTIONS (12)
  - Cardiac arrest [Recovered/Resolved]
  - Overdose [Recovered/Resolved]
  - Generalised tonic-clonic seizure [Recovered/Resolved]
  - Mydriasis [Recovered/Resolved]
  - Corneal reflex decreased [Recovered/Resolved]
  - Oculocephalogyric reflex absent [Recovered/Resolved]
  - Pulseless electrical activity [Recovered/Resolved]
  - Hypotension [Recovered/Resolved]
  - Pupil fixed [Recovered/Resolved]
  - Areflexia [Recovered/Resolved]
  - Coma [Recovered/Resolved]
  - Toxicity to various agents [Recovered/Resolved]
